FAERS Safety Report 7321358-X (Version None)
Quarter: 2011Q1

REPORT INFORMATION
  Report Type: 
  Country: None (occurrence: None)
  Receive Date: 20110228
  Receipt Date: 20100421
  Transmission Date: 20110831
  Serious: No
  Sender: FDA-Public Use
  Company Number: US-PFIZER INC-2010028091

PATIENT
  Sex: Female
  Weight: 104 kg

DRUGS (9)
  1. SEROQUEL [Concomitant]
     Dosage: UNK
  2. DEPAKOTE [Concomitant]
     Dosage: UNK
  3. GEODON [Suspect]
     Dosage: 160 MG, 2X/DAY
     Route: 048
     Dates: start: 20100209
  4. COGENTIN [Concomitant]
  5. GEODON [Suspect]
     Dosage: 80 MG, 2X/DAY
     Route: 048
     Dates: start: 20100201
  6. GEODON [Suspect]
     Indication: BIPOLAR DISORDER
     Dosage: 40 MG, 2X/DAY
     Route: 048
     Dates: start: 20100125, end: 20100201
  7. EFFEXOR XR [Concomitant]
     Dosage: UNK
  8. KLONOPIN [Concomitant]
     Dosage: UNK
  9. AMBIEN [Concomitant]
     Dosage: UNK

REACTIONS (2)
  - INCORRECT DOSE ADMINISTERED [None]
  - AKATHISIA [None]
